FAERS Safety Report 19840369 (Version 1)
Quarter: 2021Q3

REPORT INFORMATION
  Report Type: Spontaneous
  Country: US (occurrence: US)
  Receive Date: 20210916
  Receipt Date: 20210916
  Transmission Date: 20211014
  Serious: Yes (Hospitalization, Other)
  Sender: FDA-Public Use
  Company Number: US-LUPIN PHARMACEUTICALS INC.-2021-17449

PATIENT
  Age: 52 Year
  Sex: Male

DRUGS (3)
  1. CONVALESCENT PLASMA COVID?19 [Suspect]
     Active Substance: COVID-19 CONVALESCENT PLASMA
     Indication: COVID-19 PNEUMONIA
     Dosage: UNK
     Route: 065
  2. REMDESIVIR. [Suspect]
     Active Substance: REMDESIVIR
     Indication: COVID-19 PNEUMONIA
     Dosage: UNK
     Route: 065
  3. METHYLPREDNISOLONE. [Suspect]
     Active Substance: METHYLPREDNISOLONE
     Indication: COVID-19 PNEUMONIA
     Dosage: 1 MILLIGRAM/KILOGRAM
     Route: 065

REACTIONS (6)
  - Enterococcal infection [Recovering/Resolving]
  - Off label use [Unknown]
  - Pseudomonas infection [Recovering/Resolving]
  - Eubacterium infection [Recovering/Resolving]
  - Abdominal abscess [Recovering/Resolving]
  - Bacteraemia [Recovering/Resolving]
